FAERS Safety Report 5971047-9 (Version None)
Quarter: 2008Q4

REPORT INFORMATION
  Report Type: 
  Country: None (occurrence: None)
  Receive Date: 20081128
  Receipt Date: 20081126
  Transmission Date: 20090506
  Serious: Yes (Death)
  Sender: FDA-Public Use
  Company Number: PHHY2008IN29536

PATIENT
  Sex: Male

DRUGS (1)
  1. ASUNRA [Suspect]
     Dosage: 100/400 MG

REACTIONS (1)
  - DEATH [None]
